FAERS Safety Report 21854608 (Version 1)
Quarter: 2023Q1

REPORT INFORMATION
  Report Type: Spontaneous
  Country: US (occurrence: None)
  Receive Date: 20230112
  Receipt Date: 20230112
  Transmission Date: 20230417
  Serious: Yes (Hospitalization)
  Sender: FDA-Public Use
  Company Number: None

PATIENT
  Age: 63 Year
  Sex: Male
  Weight: 77 kg

DRUGS (2)
  1. WARFARIN SODIUM [Suspect]
     Active Substance: WARFARIN SODIUM
     Indication: Deep vein thrombosis
     Dates: start: 20220927
  2. WARFARIN SODIUM [Suspect]
     Active Substance: WARFARIN SODIUM
     Indication: Pulmonary embolism

REACTIONS (2)
  - Pulmonary embolism [None]
  - Anticoagulation drug level below therapeutic [None]

NARRATIVE: CASE EVENT DATE: 20221228
